FAERS Safety Report 7830911-6 (Version None)
Quarter: 2011Q4

REPORT INFORMATION
  Report Type: 
  Country: None (occurrence: None)
  Receive Date: 20111021
  Receipt Date: 20111013
  Transmission Date: 20120403
  Serious: Yes (Hospitalization)
  Sender: FDA-Public Use
  Company Number: NL-PFIZER INC-2011239634

PATIENT
  Age: 64 Year
  Sex: Female

DRUGS (3)
  1. AROMASIN [Suspect]
     Indication: BREAST CANCER
     Dosage: 25 MG, 1X/DAY
     Route: 048
     Dates: start: 20110713, end: 20110728
  2. CLORAZEPATE DIPOTASSIUM [Concomitant]
     Dosage: 5 MG, 2X/DAY
     Route: 048
     Dates: start: 20010701
  3. SELOKEEN [Concomitant]
     Dosage: 50 MG, 2X/DAY
     Route: 048
     Dates: start: 20090401

REACTIONS (6)
  - ANGIOEDEMA [None]
  - PHARYNGEAL OEDEMA [None]
  - SWOLLEN TONGUE [None]
  - LIP SWELLING [None]
  - SWELLING [None]
  - DYSPHAGIA [None]
